FAERS Safety Report 7375455-3 (Version None)
Quarter: 2011Q1

REPORT INFORMATION
  Report Type: 
  Country: None (occurrence: None)
  Receive Date: 20110315
  Receipt Date: 20101006
  Transmission Date: 20110831
  Serious: Yes (Disabling)
  Sender: FDA-Public Use
  Company Number: FKO201000445

PATIENT
  Age: 17 Year
  Sex: Female
  Weight: 65 kg

DRUGS (43)
  1. DEXAMETHASONE [Suspect]
     Indication: ACUTE LYMPHOCYTIC LEUKAEMIA
     Dosage: 4 MG, ORAL
     Route: 048
     Dates: start: 20060101, end: 20060101
  2. DECADRON [Suspect]
     Indication: ACUTE LYMPHOCYTIC LEUKAEMIA
     Dosage: 4 MG. 2 IN 1 D
  3. IMMUNOGLOBULING (IMMUNOGLOBULIN G HUMAN) (IMMUNOGLOBULIN G HUMAN) [Concomitant]
  4. OXYCONTIN (OXYCODONE HYDROCHLORIDE) (OXYCODONE HYDROCHLORIDE) [Concomitant]
  5. LORTAB (VICODIN) (VICODIN) [Concomitant]
  6. TYLENOL (PARACETAMOL) (PARACETAMOL) [Concomitant]
  7. THIOGUANINE (TIOGUANINE) (TIOGUANINE) [Concomitant]
  8. ROCEPHIM (CEFTRIABINE ) (CEFTRIAXONE) [Concomitant]
  9. TRILEPTAL (OXCARBAZEPINE) (OXCARBAZEPINE) [Concomitant]
  10. ZOFRAN [Concomitant]
  11. FLU (INFLUENZA VACCINE) (INFLUENZA VACCINE) [Concomitant]
  12. PENTAMIDINE (PENTAMIDINE) (PENTAMIDINE) [Concomitant]
  13. KEPPRA [Concomitant]
  14. PRILOSEC (OMEPRAZOLE) (OMEPRAZOLE) [Concomitant]
  15. CYTARABINE [Concomitant]
  16. CYCLOPHOSPHAMIDE [Concomitant]
  17. TORADOL (KETOROLAC TROMETHAMINE) (KETOROLAC TROMETHAMINE) [Concomitant]
  18. CYMBALTA (DULOXETINE HYDROCHLORIDE) (DULOXETINE HYDROCHLORIDE) [Concomitant]
  19. BENADRYL (DIPHENHYDRAMINE HYDROCHLORIDE) (DIPHENHYDRAMINE HYDROCHLORID [Concomitant]
  20. OMNICEF (CEFOTAXIME SODIUM) (CEFOTAXIME SODIUM) [Concomitant]
  21. LEXAPRO (ESCITALOPRAM OXALATE) (ESCITALOPRAM OXALATE) [Concomitant]
  22. DAUNOMYCIN (DAUNORUBICIN) (DAUNORUBICIN) [Concomitant]
  23. PERCOCET (TYLOX /00446701/) (TYLOX /00446701/) [Concomitant]
  24. VINCRISTINE [Concomitant]
  25. NEURONTIN [Concomitant]
  26. CELEBREX [Concomitant]
  27. HYDROCORTISONE (HYDROCORTISONE) (HYDROCORTISONE) [Concomitant]
  28. METHOTREXATE [Suspect]
     Indication: CHEMOTHERAPY
     Dosage: 15 MG; 1 IN 1 WK
  29. PAMIDRONATE (PAMIDRONATE DISODIUM) (PAMIDRONATE DISODIUM) [Concomitant]
  30. BACTRIM [Concomitant]
  31. IBUPROFEN [Concomitant]
  32. CORTEF (HYDROCORTISONE) (HYDROCORTISONE) [Concomitant]
  33. PEG ASPARAGINASE (PEGASPARGASE) (PEGASPARGASE) [Concomitant]
  34. DOXORUBICIN HCL [Concomitant]
  35. ARA-C (CYTARABINE) (CYTARABINE) [Concomitant]
  36. ATIVAN [Concomitant]
  37. MERCAPTOPURINE [Suspect]
     Indication: CHEMOTHERAPY
     Dosage: 125 MG, ORAL
     Route: 048
  38. LEVETIRACETAM [Suspect]
  39. ACYCLOVIR (ACICLOVIR) (ACICLOVIR) [Concomitant]
  40. KYTRIL (GRANISETRON) (GRANISETRON) [Concomitant]
  41. PREVACID (LANSOPRAZOLE) (LANSOPRAZOLE) [Concomitant]
  42. SOLUCORTEF (HYDROCORTISONE SODIUM SUCCINATE) (HYDROCORTISONE SODIUM SU [Concomitant]
  43. DIFLUCAN (FLUCONAZOLE) (FLUCONAZOLE) [Concomitant]

REACTIONS (16)
  - HEADACHE [None]
  - ARTHRALGIA [None]
  - DECREASED APPETITE [None]
  - JOINT EFFUSION [None]
  - NERVOUS SYSTEM DISORDER [None]
  - BONE INFARCTION [None]
  - SLEEP DISORDER DUE TO A GENERAL MEDICAL CONDITION [None]
  - PAIN [None]
  - BONE PAIN [None]
  - ARTHROPATHY [None]
  - IMPAIRED WORK ABILITY [None]
  - NEUTROPHIL COUNT DECREASED [None]
  - JOINT DESTRUCTION [None]
  - OSTEONECROSIS [None]
  - GAIT DISTURBANCE [None]
  - TOOTHACHE [None]
